FAERS Safety Report 6880517-0 (Version None)
Quarter: 2010Q3

REPORT INFORMATION
  Report Type: 
  Country: None (occurrence: None)
  Receive Date: 20100727
  Receipt Date: 20100713
  Transmission Date: 20110219
  Serious: Yes (Hospitalization)
  Sender: FDA-Public Use
  Company Number: B0665682A

PATIENT
  Age: 47 Year
  Sex: Male
  Weight: 73 kg

DRUGS (6)
  1. ARIXTRA [Suspect]
     Indication: MYOCARDIAL INFARCTION
     Dosage: 2.5MG PER DAY
     Route: 058
     Dates: start: 20100519, end: 20100520
  2. ANGIOMAX [Suspect]
     Indication: PRODUCT USED FOR UNKNOWN INDICATION
     Dosage: 36.6ML PER DAY
     Route: 042
     Dates: start: 20100519, end: 20100519
  3. KARDEGIC [Suspect]
     Indication: MYOCARDIAL INFARCTION
     Dosage: 75MG PER DAY
     Route: 048
     Dates: start: 20100519
  4. PLAVIX [Suspect]
     Indication: MYOCARDIAL INFARCTION
     Dosage: 75MG PER DAY
     Route: 048
     Dates: start: 20100519
  5. UNFRACTIONATED HEPARIN [Concomitant]
     Indication: PRODUCT USED FOR UNKNOWN INDICATION
     Route: 065
  6. ASPIRIN [Concomitant]
     Route: 065

REACTIONS (3)
  - ANAEMIA [None]
  - EPISTAXIS [None]
  - OFF LABEL USE [None]
